FAERS Safety Report 6490472-3 (Version None)
Quarter: 2009Q4

REPORT INFORMATION
  Report Type: 
  Country: None (occurrence: None)
  Receive Date: 20091211
  Receipt Date: 20091208
  Transmission Date: 20100525
  Serious: Yes (Death, Life-Threatening, Hospitalization)
  Sender: FDA-Public Use
  Company Number: FR-BAYER-200941999GPV

PATIENT
  Age: 78 Year
  Sex: Male

DRUGS (11)
  1. NEXAVAR [Suspect]
     Indication: HEPATIC NEOPLASM MALIGNANT RECURRENT
     Dosage: TOTAL DAILY DOSE: 800 MG  UNIT DOSE: 200 MG
     Route: 048
     Dates: start: 20080510, end: 20080528
  2. PREVISCAN [Suspect]
     Indication: ARRHYTHMIA
     Route: 048
     Dates: end: 20080528
  3. FONZYLANE [Concomitant]
     Dosage: 300
  4. TARDYFERON [Concomitant]
     Dosage: 80
  5. FLECAINIDE ACETATE [Concomitant]
     Dosage: 200
  6. STILNOX [Concomitant]
  7. NEXIUM [Concomitant]
     Dosage: 20
  8. ATENOLOL [Concomitant]
     Dosage: 50
  9. ALDACTONE [Concomitant]
     Dosage: 25
  10. VASTAREL [Concomitant]
     Dosage: 35
  11. CACIT D3 [Concomitant]

REACTIONS (3)
  - GASTRIC HAEMORRHAGE [None]
  - INTERNATIONAL NORMALISED RATIO INCREASED [None]
  - OESOPHAGEAL ULCER [None]
